FAERS Safety Report 11451269 (Version 2)
Quarter: 2015Q3

REPORT INFORMATION
  Report Type: Spontaneous
  Country: JP (occurrence: JP)
  Receive Date: 20150903
  Receipt Date: 20150909
  Transmission Date: 20151125
  Serious: Yes (Death, Other)
  Sender: FDA-Public Use
  Company Number: JP-009507513-1508JPN013376

PATIENT
  Age: 80 Year
  Sex: Male

DRUGS (1)
  1. ZOLINZA [Suspect]
     Active Substance: VORINOSTAT
     Indication: MYCOSIS FUNGOIDES
     Dosage: 300 MG, FOR 5 CONSECUTIVE DAYS TREATMENT AND 2 DAYS OFF; DIVIDED DOSE
     Route: 048
     Dates: start: 201507, end: 20150801

REACTIONS (2)
  - Skin infection [Unknown]
  - Sepsis [Fatal]

NARRATIVE: CASE EVENT DATE: 20150722
